FAERS Safety Report 4910497-6 (Version None)
Quarter: 2006Q1

REPORT INFORMATION
  Report Type: 
  Country: None (occurrence: None)
  Receive Date: 20060209
  Receipt Date: 20060124
  Transmission Date: 20060701
  Serious: No
  Sender: FDA-Public Use
  Company Number: 13106

PATIENT
  Age: 16 Year
  Sex: Female
  Weight: 55 kg

DRUGS (1)
  1. DROPERIDOL [Suspect]
     Dosage: 5.3 MG TOTAL EP
     Route: 008

REACTIONS (11)
  - DYSKINESIA [None]
  - DYSPNOEA [None]
  - EPILEPSY [None]
  - EXTRAPYRAMIDAL DISORDER [None]
  - EYE MOVEMENT DISORDER [None]
  - HYPERHIDROSIS [None]
  - HYPERTENSION [None]
  - HYPERTONIA [None]
  - OPISTHOTONUS [None]
  - TREMOR [None]
  - VOMITING [None]
